FAERS Safety Report 24851263 (Version 1)
Quarter: 2025Q1

REPORT INFORMATION
  Report Type: Spontaneous
  Country: US (occurrence: None)
  Receive Date: 20250116
  Receipt Date: 20250116
  Transmission Date: 20250408
  Serious: Yes (Disabling, Other)
  Sender: FDA-CTU
  Company Number: None

PATIENT
  Age: 29 Year
  Sex: Female
  Weight: 51.75 kg

DRUGS (1)
  1. MONISTAT 3 [Suspect]
     Active Substance: MICONAZOLE NITRATE
     Indication: Fungal infection
     Dosage: FREQUENCY : AT BEDTIME;?
     Route: 067
     Dates: start: 20250114, end: 20250115

REACTIONS (5)
  - Application site reaction [None]
  - Haemorrhage [None]
  - Blister [None]
  - Chemical burn [None]
  - Female reproductive tract disorder [None]

NARRATIVE: CASE EVENT DATE: 20250115
